FAERS Safety Report 6112072-7 (Version None)
Quarter: 2009Q1

REPORT INFORMATION
  Report Type: 
  Country: None (occurrence: None)
  Receive Date: 20090311
  Receipt Date: 20090302
  Transmission Date: 20090719
  Serious: Yes (Death, Hospitalization)
  Sender: FDA-Public Use
  Company Number: SE-PFIZER INC-2009177172

PATIENT

DRUGS (10)
  1. SUNITINIB MALATE [Suspect]
     Dosage: 50 MG, 1X/DAY
     Dates: start: 20081110, end: 20081203
  2. XALATAN [Concomitant]
  3. FELODIPINE [Concomitant]
  4. GABAPENTIN [Concomitant]
  5. OMEPRAZOLE [Concomitant]
  6. COSOPT [Concomitant]
  7. ALPHAGAN [Concomitant]
  8. BETAPRED [Concomitant]
     Dosage: 0.5 MG
     Route: 048
  9. DOLCONTIN [Concomitant]
     Dosage: 30 MG
     Route: 048
  10. ALVEDON FORTE [Concomitant]
     Dosage: 1 MG, UNK

REACTIONS (2)
  - HYPOTHYROIDISM [None]
  - MYOCARDIAL INFARCTION [None]
